FAERS Safety Report 8577375-5 (Version None)
Quarter: 2012Q3

REPORT INFORMATION
  Report Type: 
  Country: None (occurrence: None)
  Receive Date: 20120807
  Receipt Date: 20120727
  Transmission Date: 20120928
  Serious: Yes (Hospitalization)
  Sender: FDA-Public Use
  Company Number: JP-CELGENEUS-087-21880-12072547

PATIENT

DRUGS (17)
  1. ALLOPURINOL [Concomitant]
     Route: 065
     Dates: start: 20110813
  2. TELMISARTAN [Concomitant]
     Route: 065
     Dates: start: 20110813
  3. REVLIMID [Suspect]
     Indication: MULTIPLE MYELOMA
     Route: 048
  4. DEXAMETHASONE ACETATE [Suspect]
     Indication: MULTIPLE MYELOMA
     Route: 065
  5. ELOTUZUMAB [Suspect]
     Indication: MULTIPLE MYELOMA
     Route: 065
  6. AMLODIPINE BESYLATE [Concomitant]
     Route: 065
     Dates: start: 20110813
  7. CELESTAMINE TAB [Concomitant]
     Route: 065
     Dates: start: 20120717
  8. SUCRALFATE [Concomitant]
     Route: 065
     Dates: start: 20120717
  9. BEZAFIBRATE [Concomitant]
     Route: 065
     Dates: start: 20110713
  10. ZOLEDRONIC ACID HYDRATE [Concomitant]
     Route: 065
     Dates: start: 20120702, end: 20120702
  11. INDOMETHACIN [Concomitant]
     Route: 065
     Dates: start: 20111003
  12. TIARAMIDE HYDROCHLORIDE [Concomitant]
     Route: 065
     Dates: start: 20120704, end: 20120706
  13. ASPIRIN [Concomitant]
     Route: 065
     Dates: start: 20120612, end: 20120719
  14. ISOSORBIDE DINITRATE [Concomitant]
     Route: 065
     Dates: start: 20110813
  15. LANSOPRAZOLE [Concomitant]
     Route: 065
     Dates: start: 20110808
  16. DAIFEN (SULFAMETHOXAZOLE, TRIMETHOPRIM) [Concomitant]
     Route: 065
     Dates: start: 20110808
  17. ACYCLOVIR [Concomitant]
     Route: 065
     Dates: start: 20110810

REACTIONS (1)
  - HYPONATRAEMIA [None]
